FAERS Safety Report 21056897 (Version 1)
Quarter: 2022Q3

REPORT INFORMATION
  Report Type: Spontaneous
  Country: US (occurrence: None)
  Receive Date: 20220707
  Receipt Date: 20220707
  Transmission Date: 20221026
  Serious: Yes (Death)
  Sender: FDA-Public Use
  Company Number: None

PATIENT
  Age: 75 Year
  Sex: Male

DRUGS (1)
  1. BOTOX [Suspect]
     Active Substance: ONABOTULINUMTOXINA
     Indication: Saliva altered
     Dosage: 100 UNITS OTHER INTRAMUSCULAR
     Route: 030
     Dates: start: 202006, end: 202205

REACTIONS (1)
  - Death [None]

NARRATIVE: CASE EVENT DATE: 20220511
